FAERS Safety Report 4930310-0 (Version None)
Quarter: 2006Q1

REPORT INFORMATION
  Report Type: 
  Country: None (occurrence: None)
  Receive Date: 20060118
  Receipt Date: 20050629
  Transmission Date: 20060701
  Serious: No
  Sender: FDA-Public Use
  Company Number: 2005001227

PATIENT
  Sex: Male

DRUGS (1)
  1. TARCEVA [Suspect]
     Dosage: ORAL
     Route: 048

REACTIONS (2)
  - GAIT DISTURBANCE [None]
  - TREMOR [None]
